APPROVED DRUG PRODUCT: HYDROCORTISONE
Active Ingredient: HYDROCORTISONE
Strength: 2.5%
Dosage Form/Route: CREAM;TOPICAL
Application: A040879 | Product #001 | TE Code: AT
Applicant: RISING PHARMA HOLDINGS INC
Approved: Aug 20, 2010 | RLD: No | RS: No | Type: RX